FAERS Safety Report 4808695-5 (Version None)
Quarter: 2005Q4

REPORT INFORMATION
  Report Type: 
  Country: None (occurrence: None)
  Receive Date: 20051021
  Receipt Date: 20020913
  Transmission Date: 20060501
  Serious: Yes (Life-Threatening)
  Sender: FDA-Public Use
  Company Number: US_020988062

PATIENT
  Age: 38 Year
  Sex: Male
  Weight: 50 kg

DRUGS (9)
  1. ZYPREXA [Suspect]
     Indication: SCHIZOPHRENIA
     Dosage: 10 MG/DAY
     Dates: start: 20020612, end: 20020911
  2. HALOPERIDOL [Concomitant]
  3. CHLORPROMAZINE HCL [Concomitant]
  4. LUVOX [Concomitant]
  5. PRIMPERAN TAB [Concomitant]
  6. MAGNESIUM OXIDE [Concomitant]
  7. NITRAZEPAM [Concomitant]
  8. RISPERDAL [Concomitant]
  9. DIAZEPAM [Concomitant]

REACTIONS (4)
  - HYPERGLYCAEMIA [None]
  - RED BLOOD CELL COUNT DECREASED [None]
  - VIRAL INFECTION [None]
  - WHITE BLOOD CELL COUNT DECREASED [None]
